FAERS Safety Report 26086567 (Version 1)
Quarter: 2025Q4

REPORT INFORMATION
  Report Type: Spontaneous
  Country: US (occurrence: US)
  Receive Date: 20251125
  Receipt Date: 20251125
  Transmission Date: 20260117
  Serious: Yes (Life-Threatening, Hospitalization)
  Sender: ACCORD
  Company Number: US-Accord-514204

PATIENT
  Age: 69 Year
  Sex: Female

DRUGS (8)
  1. ETOPOSIDE [Suspect]
     Active Substance: ETOPOSIDE
     Indication: Haemophagocytic lymphohistiocytosis
  2. VANCOMYCIN [Concomitant]
     Active Substance: VANCOMYCIN
  3. METHOTREXATE [Concomitant]
     Active Substance: METHOTREXATE
     Indication: Haemophagocytic lymphohistiocytosis
     Route: 037
  4. PIPERACILLIN SODIUM\TAZOBACTAM SODIUM [Concomitant]
     Active Substance: PIPERACILLIN SODIUM\TAZOBACTAM SODIUM
  5. SULFAMETHOXAZOLE\TRIMETHOPRIM [Concomitant]
     Active Substance: SULFAMETHOXAZOLE\TRIMETHOPRIM
  6. DEXAMETHASONE [Concomitant]
     Active Substance: DEXAMETHASONE
     Indication: Haemophagocytic lymphohistiocytosis
  7. RITUXIMAB [Concomitant]
     Active Substance: RITUXIMAB
     Indication: Haemophagocytic lymphohistiocytosis
  8. RITUXIMAB [Concomitant]
     Active Substance: RITUXIMAB
     Indication: Epstein-Barr virus infection

REACTIONS (2)
  - Pancytopenia [Not Recovered/Not Resolved]
  - Off label use [Unknown]
